FAERS Safety Report 23215428 (Version 1)
Quarter: 2023Q4

REPORT INFORMATION
  Report Type: Spontaneous
  Country: BR (occurrence: BR)
  Receive Date: 20231122
  Receipt Date: 20231122
  Transmission Date: 20240110
  Serious: Yes (Hospitalization, Other)
  Sender: FDA-Public Use
  Company Number: BR-CHEPLA-2023014684

PATIENT
  Sex: Female
  Weight: 36 kg

DRUGS (3)
  1. CLONAZEPAM [Suspect]
     Active Substance: CLONAZEPAM
     Indication: Depression
     Dosage: MORE THAN 40 YEARS AGO, WITH A DOSAGE OF 1 TO 2 TABLETS PER DAY, AT BEDTIME
     Route: 048
  2. CLONAZEPAM [Suspect]
     Active Substance: CLONAZEPAM
     Indication: Depression
     Dosage: CLONAZEPAM GENERIC
  3. CLONAZEPAM [Suspect]
     Active Substance: CLONAZEPAM
     Indication: Depression
     Dosage: SHE IS PROVIDING 1 TO 1.5 TABLETS, AS PER MEDICAL ADVICE

REACTIONS (12)
  - Drug dependence [Not Recovered/Not Resolved]
  - Femur fracture [Recovered/Resolved]
  - Femur fracture [Recovered/Resolved]
  - Dementia [Not Recovered/Not Resolved]
  - Insomnia [Not Recovered/Not Resolved]
  - Nervousness [Not Recovered/Not Resolved]
  - Osteoporosis [Not Recovered/Not Resolved]
  - Memory impairment [Not Recovered/Not Resolved]
  - Upper limb fracture [Recovered/Resolved]
  - Underweight [Not Recovered/Not Resolved]
  - Hypertension [Not Recovered/Not Resolved]
  - Product use in unapproved indication [Not Recovered/Not Resolved]

NARRATIVE: CASE EVENT DATE: 20030101
